FAERS Safety Report 9402892 (Version 4)
Quarter: 2014Q1

REPORT INFORMATION
  Report Type: Report from Study
  Country: JP (occurrence: JP)
  Receive Date: 20130716
  Receipt Date: 20140326
  Transmission Date: 20141002
  Serious: Yes (Hospitalization, Other)
  Sender: FDA-Public Use
  Company Number: JP-VERTEX PHARMACEUTICALS INC-AE-2012-003363

PATIENT
  Age: 61 Year
  Sex: Female

DRUGS (16)
  1. VX-950 (TELAPREVIR) [Suspect]
     Indication: CHRONIC HEPATITIS C
     Dosage: 2250 MG, QD
     Route: 048
     Dates: start: 20120221, end: 20120229
  2. VX-950 (TELAPREVIR) [Suspect]
     Dosage: 1500 MG, QD
     Route: 048
     Dates: start: 20120301, end: 20120522
  3. REBETOL [Suspect]
     Indication: CHRONIC HEPATITIS C
     Dosage: 600 MG, QD
     Route: 048
     Dates: start: 20120221, end: 20120301
  4. REBETOL [Suspect]
     Dosage: 400 MG, QD
     Route: 048
     Dates: start: 20120302, end: 20120807
  5. PEGINTRON [Suspect]
     Indication: CHRONIC HEPATITIS C
     Dosage: 80 ?G, QW
     Route: 058
     Dates: start: 20120221, end: 20120319
  6. PEGINTRON [Suspect]
     Dosage: 1.13 ?G/KG, QW
     Route: 058
     Dates: start: 20120319, end: 20120410
  7. PEGINTRON [Suspect]
     Dosage: 0.94 ?G/KG, QW
     Route: 058
     Dates: start: 20120417
  8. PEGINTRON [Suspect]
     Dosage: 1.5 ?G/KG, QW
     Route: 058
     Dates: end: 20120807
  9. FAMOSTAGINE-D [Concomitant]
     Dosage: 20 MG, QD
     Route: 048
     Dates: start: 20120207
  10. FAMOSTAGINE-D [Concomitant]
     Dosage: 20 MG, QD
     Route: 048
  11. BLOPRESS [Concomitant]
     Dosage: 8 MG, QD
     Route: 048
     Dates: start: 20120221
  12. SELTEPNON [Concomitant]
     Dosage: 150 MG, QD
     Route: 048
     Dates: start: 20120221, end: 20120807
  13. GASMOTIN [Concomitant]
     Dosage: 15 MG, QD
     Route: 048
     Dates: start: 20120221, end: 20120807
  14. EPINASTINE HYDROCHLORIDE [Concomitant]
     Dosage: 20 MG, QD
     Route: 048
     Dates: start: 20120221, end: 20120807
  15. PREDONINE [Concomitant]
     Dosage: 5 MG, QD
     Route: 048
     Dates: start: 20120403, end: 20120409
  16. ALEROFF [Concomitant]
     Dosage: 20 MG, QD
     Route: 048
     Dates: start: 20120327

REACTIONS (2)
  - Drug eruption [Recovered/Resolved]
  - Neutrophil count decreased [Recovering/Resolving]
